FAERS Safety Report 8881158 (Version 3)
Quarter: 2016Q4

REPORT INFORMATION
  Report Type: Spontaneous
  Country: US (occurrence: US)
  Receive Date: 20121031
  Receipt Date: 20161031
  Transmission Date: 20170207
  Serious: Yes (Hospitalization, Disabling, Other)
  Sender: FDA-Public Use
  Company Number: US-009507513-1210USA010209

PATIENT
  Sex: Female
  Weight: 77.98 kg

DRUGS (9)
  1. ALENDRONATE SODIUM. [Suspect]
     Active Substance: ALENDRONATE SODIUM
     Indication: OSTEOPOROSIS
     Dosage: 70 MG, QW
     Route: 048
     Dates: start: 20080512, end: 201204
  2. LYRICA [Concomitant]
     Active Substance: PREGABALIN
     Indication: RHEUMATOID ARTHRITIS
     Dosage: 150 MG, BID
     Route: 048
     Dates: start: 200901, end: 2012
  3. EVISTA [Concomitant]
     Active Substance: RALOXIFENE HYDROCHLORIDE
     Indication: OSTEOPOROSIS
     Dosage: UNK
     Dates: start: 2002
  4. FOSAMAX PLUS D [Suspect]
     Active Substance: ALENDRONATE SODIUM\CHOLECALCIFEROL
     Indication: OSTEOPOROSIS
     Dosage: 70 MG, QW
     Route: 048
     Dates: start: 20060420, end: 20071112
  5. OMEGA-3 ACIDS [Concomitant]
     Active Substance: OMEGA-3 FATTY ACIDS
     Dosage: UNK
     Dates: start: 2003
  6. VITAMINS (UNSPECIFIED) [Concomitant]
     Active Substance: VITAMINS
     Dosage: 1 DAILY
     Route: 048
     Dates: start: 2003
  7. PLAQUENIL [Concomitant]
     Active Substance: HYDROXYCHLOROQUINE SULFATE
     Indication: RHEUMATOID ARTHRITIS
     Dosage: 200 MG, BID
     Route: 048
     Dates: start: 200806, end: 2012
  8. MOBIC [Concomitant]
     Active Substance: MELOXICAM
     Indication: RHEUMATOID ARTHRITIS
     Dosage: 7.5 -15 MG QD
     Dates: start: 201102, end: 2012
  9. FOSAMAX [Suspect]
     Active Substance: ALENDRONATE SODIUM
     Indication: OSTEOPOROSIS
     Dosage: 70 MG, QW
     Route: 048
     Dates: start: 20071226, end: 20080511

REACTIONS (27)
  - Fracture delayed union [Unknown]
  - Complication associated with device [Unknown]
  - Arthritis [Unknown]
  - Cholecystectomy [Unknown]
  - Stress fracture [Not Recovered/Not Resolved]
  - Squamous cell carcinoma of skin [Unknown]
  - Pulmonary embolism [Unknown]
  - Joint effusion [Unknown]
  - Arrhythmia [Unknown]
  - Procedural nausea [Unknown]
  - Transient ischaemic attack [Unknown]
  - Femur fracture [Not Recovered/Not Resolved]
  - Osteoporosis [Not Recovered/Not Resolved]
  - Osteopenia [Unknown]
  - Peripheral swelling [Recovered/Resolved]
  - Intramedullary rod insertion [Not Recovered/Not Resolved]
  - Tonsillectomy [Unknown]
  - Femur fracture [Not Recovered/Not Resolved]
  - Adverse event [Unknown]
  - Hysterectomy [Unknown]
  - Musculoskeletal disorder [Unknown]
  - Temperature difference of extremities [Recovered/Resolved]
  - Low turnover osteopathy [Not Recovered/Not Resolved]
  - Hypertension [Unknown]
  - Pain in extremity [Recovered/Resolved]
  - Medical device removal [Unknown]
  - Migraine [Unknown]

NARRATIVE: CASE EVENT DATE: 2007
